FAERS Safety Report 5659825-7 (Version None)
Quarter: 2008Q1

REPORT INFORMATION
  Report Type: 
  Country: None (occurrence: None)
  Receive Date: 20080311
  Receipt Date: 20070725
  Transmission Date: 20080703
  Serious: No
  Sender: FDA-Public Use
  Company Number: UA-BAYER-200712378BCC

PATIENT
  Age: 68 Year
  Sex: Female
  Weight: 91 kg

DRUGS (5)
  1. ALEVE [Suspect]
     Indication: ARTHRALGIA
     Dosage: UNIT DOSE: 220 MG
     Route: 048
     Dates: start: 20070101
  2. L-THYROXINE [Concomitant]
  3. DIOVAN [Concomitant]
  4. SULFASALAZINE [Concomitant]
  5. TRIAMTERENE AND HYDROCHLOROTHIAZIDE [Concomitant]

REACTIONS (1)
  - FLUID RETENTION [None]
